FAERS Safety Report 4609572-5 (Version None)
Quarter: 2005Q1

REPORT INFORMATION
  Report Type: 
  Country: None (occurrence: None)
  Receive Date: 20050314
  Receipt Date: 20050314
  Transmission Date: 20050727
  Serious: Yes (Death, Other)
  Sender: FDA-Public Use
  Company Number: None

PATIENT
  Sex: Male
  Weight: 69.2 kg

DRUGS (2)
  1. CYTARABINE [Suspect]
     Dosage: SEE IMAGE
     Route: 003
     Dates: start: 20050120
  2. DAUNORUBICIN HCL [Suspect]
     Dosage: SEE IMAGE
     Route: 042
     Dates: start: 20050120

REACTIONS (2)
  - LEUKAEMIA [None]
  - THERAPEUTIC PRODUCT INEFFECTIVE [None]
